FAERS Safety Report 6877837-2 (Version None)
Quarter: 2010Q3

REPORT INFORMATION
  Report Type: 
  Country: None (occurrence: None)
  Receive Date: 20100727
  Receipt Date: 20070702
  Transmission Date: 20110219
  Serious: Yes (Hospitalization, Other)
  Sender: FDA-Public Use
  Company Number: US-PFIZER INC-2006105629

PATIENT
  Sex: Female

DRUGS (10)
  1. CELEBREX [Suspect]
     Indication: PAIN
     Dates: start: 19990726, end: 20000630
  2. VIOXX [Suspect]
     Indication: OSTEOARTHRITIS
     Dates: start: 19991201, end: 20000110
  3. ASPIRIN [Concomitant]
     Indication: PAIN
  4. AVANDIA [Concomitant]
     Indication: DIABETES MELLITUS
  5. AVAPRO [Concomitant]
     Indication: HYPERTENSION
  6. WARFARIN SODIUM [Concomitant]
  7. GLUCOPHAGE [Concomitant]
     Indication: DIABETES MELLITUS
  8. INSULIN [Concomitant]
     Indication: DIABETES MELLITUS
  9. LIDODERM [Concomitant]
     Indication: BACK PAIN
  10. LIPITOR [Concomitant]
     Indication: BLOOD CHOLESTEROL INCREASED
     Dates: start: 20010101

REACTIONS (1)
  - PULMONARY EMBOLISM [None]
